FAERS Safety Report 4761973-0 (Version None)
Quarter: 2005Q3

REPORT INFORMATION
  Report Type: 
  Country: None (occurrence: None)
  Receive Date: 20050906
  Receipt Date: 20050721
  Transmission Date: 20060218
  Serious: Yes (Hospitalization)
  Sender: FDA-Public Use
  Company Number: BR-MERCK-0509BRA00013

PATIENT
  Age: 74 Year
  Sex: Female
  Weight: 71 kg

DRUGS (2)
  1. VIOXX [Suspect]
     Indication: BONE PAIN
     Route: 048
     Dates: start: 20020101, end: 20040201
  2. VIOXX [Suspect]
     Indication: FOOT FRACTURE
     Route: 048
     Dates: start: 20020101, end: 20040201

REACTIONS (6)
  - BREAST PAIN [None]
  - DIABETES MELLITUS [None]
  - HYPERTENSION [None]
  - LARYNGOSPASM [None]
  - RESPIRATORY FAILURE [None]
  - URTICARIA [None]
